FAERS Safety Report 14952273 (Version 1)
Quarter: 2018Q2

REPORT INFORMATION
  Report Type: Spontaneous
  Country: US (occurrence: US)
  Receive Date: 20180509
  Receipt Date: 20180509
  Transmission Date: 20180711
  Serious: Yes (Death)
  Sender: FDA-Public Use
  Company Number: None

PATIENT
  Age: 55 Year
  Sex: Male
  Weight: 92 kg

DRUGS (2)
  1. 177LU~DOTAU -TYR3-OCTREOTATE [Suspect]
     Active Substance: LUTETIUM OXODOTREOTIDE LU-177
     Indication: SMALL CELL LUNG CANCER
     Dosage: OTHER FREQUENCY:EVERY 8 WEEKS;?
     Route: 042
     Dates: start: 20180315
  2. NIVOLUMAB, 240MG [Suspect]
     Active Substance: NIVOLUMAB
     Indication: SMALL CELL LUNG CANCER
     Route: 042
     Dates: start: 20180301, end: 20180412

REACTIONS (1)
  - Disease progression [None]

NARRATIVE: CASE EVENT DATE: 20180507
